FAERS Safety Report 5327192-4 (Version None)
Quarter: 2007Q2

REPORT INFORMATION
  Report Type: 
  Country: None (occurrence: None)
  Receive Date: 20070517
  Receipt Date: 20070510
  Transmission Date: 20071010
  Serious: Yes (Hospitalization)
  Sender: FDA-Public Use
  Company Number: DE-AMGEN-US224809

PATIENT
  Sex: Female
  Weight: 47.6 kg

DRUGS (3)
  1. ENBREL [Suspect]
     Indication: JUVENILE ARTHRITIS
     Route: 058
     Dates: start: 20050905, end: 20061012
  2. ENBREL [Suspect]
     Route: 058
     Dates: start: 20061017
  3. LANTAREL [Concomitant]
     Indication: JUVENILE ARTHRITIS
     Route: 048

REACTIONS (2)
  - DACRYOADENITIS ACQUIRED [None]
  - PURULENCE [None]
